FAERS Safety Report 8659795 (Version 3)
Quarter: 2012Q4

REPORT INFORMATION
  Report Type: 
  Country: DE (occurrence: DE)
  Receive Date: 20120711
  Receipt Date: 20121025
  Transmission Date: 20130627
  Serious: Yes (Other)
  Sender: FDA-Public Use
  Company Number: DE-B.I. PHARMACEUTICALS,INC./RIDGEFIELD-2012-DE-01628DE

PATIENT
  Age: 84 None
  Sex: Female
  Weight: 60 kg

DRUGS (4)
  1. PRADAXA [Suspect]
     Indication: ATRIAL FIBRILLATION
     Dosage: 220 mg
     Dates: start: 201110, end: 20120514
  2. METOPROLOL [Concomitant]
  3. ENAHEXAL [Concomitant]
     Dosage: Strength: 10 / 25
  4. GLIMEPIRID [Concomitant]
     Dosage: 1 mg

REACTIONS (3)
  - Transaminases increased [Unknown]
  - Liver function test abnormal [Unknown]
  - Bile duct stone [Unknown]
